FAERS Safety Report 5660473-3 (Version None)
Quarter: 2008Q1

REPORT INFORMATION
  Report Type: 
  Country: None (occurrence: None)
  Receive Date: 20080306
  Receipt Date: 20080220
  Transmission Date: 20080703
  Serious: Yes (Life-Threatening, Hospitalization)
  Sender: FDA-Public Use
  Company Number: 8030233

PATIENT
  Age: 54 Year
  Sex: Female

DRUGS (3)
  1. PREDNISOLONE [Suspect]
     Indication: SYSTEMIC LUPUS ERYTHEMATOSUS
     Dosage: 30MG 1/D
  2. PREDNISOLONE [Suspect]
     Indication: SYSTEMIC LUPUS ERYTHEMATOSUS
     Dosage: 15 MG 1/D
  3. HYDROXYCHLOROQUINE SULFATE [Suspect]
     Indication: SYSTEMIC LUPUS ERYTHEMATOSUS
     Dosage: 200 MG 2/D

REACTIONS (8)
  - ACUTE ABDOMEN [None]
  - CONSTIPATION [None]
  - HERPES ZOSTER [None]
  - HYPOVOLAEMIC SHOCK [None]
  - OEDEMA PERIPHERAL [None]
  - RENAL ANEURYSM [None]
  - RETROPERITONEAL HAEMATOMA [None]
  - SALMONELLOSIS [None]
